FAERS Safety Report 5057487-3 (Version None)
Quarter: 2006Q3

REPORT INFORMATION
  Report Type: 
  Country: None (occurrence: None)
  Receive Date: 20060721
  Receipt Date: 20051021
  Transmission Date: 20061208
  Serious: No
  Sender: FDA-Public Use
  Company Number: US-GLAXOSMITHKLINE-A0579171A

PATIENT
  Age: 52 Year
  Sex: Female

DRUGS (13)
  1. AVANDIA [Suspect]
     Dosage: 2MG PER DAY
     Route: 048
     Dates: start: 20051011
  2. METFORMIN [Suspect]
     Dosage: 500MG PER DAY
     Route: 048
     Dates: start: 20051011
  3. ZOCOR [Concomitant]
  4. RANITIDINE [Concomitant]
  5. COREG [Concomitant]
  6. LEVOTHYROXINE SODIUM [Concomitant]
  7. AMITRIPTYLINE HCL [Concomitant]
  8. ESTRADIOL [Concomitant]
  9. LORAZEPAM [Concomitant]
  10. ALPRAZOLAM [Concomitant]
  11. PROPOXYPHENE HYDROCHLORIDE [Concomitant]
  12. MULTI-VITAMIN [Concomitant]
  13. MECLIZINE [Concomitant]

REACTIONS (4)
  - ABDOMINAL PAIN [None]
  - CHANGE OF BOWEL HABIT [None]
  - DIARRHOEA [None]
  - WEIGHT DECREASED [None]
